FAERS Safety Report 18891465 (Version 2)
Quarter: 2022Q4

REPORT INFORMATION
  Report Type: Spontaneous
  Country: US (occurrence: US)
  Receive Date: 20210215
  Receipt Date: 20221226
  Transmission Date: 20230112
  Serious: Yes (Other)
  Sender: FDA-Public Use
  Company Number: US-CELLTRION INC.-2020US034584

PATIENT

DRUGS (3)
  1. TRUXIMA [Suspect]
     Active Substance: RITUXIMAB-ABBS
     Indication: Splenomegaly
     Dosage: 700 MG EVERY 28 DAYS
     Dates: start: 20200917
  2. TRUXIMA [Suspect]
     Active Substance: RITUXIMAB-ABBS
     Indication: Mantle cell lymphoma
     Dosage: 700 MG EVERY 28 DAYS
     Dates: start: 20201007
  3. TRUXIMA [Suspect]
     Active Substance: RITUXIMAB-ABBS
     Indication: Agranulocytosis

REACTIONS (4)
  - Mantle cell lymphoma [Unknown]
  - Agranulocytosis [Unknown]
  - Splenomegaly [Unknown]
  - Off label use [Unknown]
